FAERS Safety Report 7167888-5 (Version None)
Quarter: 2010Q4

REPORT INFORMATION
  Report Type: 
  Country: None (occurrence: None)
  Receive Date: 20101216
  Receipt Date: 20101208
  Transmission Date: 20110411
  Serious: Yes (Other)
  Sender: FDA-Public Use
  Company Number: GB-PFIZER INC-2010167890

PATIENT
  Sex: Female

DRUGS (2)
  1. LYRICA [Suspect]
     Indication: NEURALGIA
  2. DIHYDROCODEINE BITARTRATE [Suspect]
     Indication: NEURALGIA
     Dosage: UNK
     Dates: start: 20050101

REACTIONS (1)
  - LOSS OF CONSCIOUSNESS [None]
